FAERS Safety Report 22184580 (Version 6)
Quarter: 2023Q2

REPORT INFORMATION
  Report Type: Report from Study
  Country: PL (occurrence: None)
  Receive Date: 20230407
  Receipt Date: 20230620
  Transmission Date: 20230722
  Serious: Yes (Other)
  Sender: FDA-Public Use
  Company Number: PL-ROCHE-3319195

PATIENT
  Age: 68 Year
  Sex: Male
  Weight: 110 kg

DRUGS (12)
  1. SATRALIZUMAB [Suspect]
     Active Substance: SATRALIZUMAB
     Indication: Myasthenia gravis
     Dosage: ON 21/SEP/2022.DOSE LAST STUDY DRUG ADMIN PRIOR AE/SAE AT 12.30 PM
     Route: 058
     Dates: start: 20220406
  2. SATRALIZUMAB [Suspect]
     Active Substance: SATRALIZUMAB
     Indication: Myasthenia gravis
     Dosage: ON 01/FEB/2023 DATE OF MOST RECENT DOSE OF STUDY DRUG PRIOR TO AE/SAE 180 MG. AT 11:15 AM?DOSE CONCE
     Route: 058
     Dates: start: 20221013
  3. MESTINON [Concomitant]
     Active Substance: PYRIDOSTIGMINE BROMIDE
     Indication: Muscular weakness
     Route: 048
     Dates: start: 202106, end: 20230412
  4. MESTINON [Concomitant]
     Active Substance: PYRIDOSTIGMINE BROMIDE
     Route: 048
     Dates: start: 20230413
  5. ZOXON (POLAND) [Concomitant]
     Indication: Benign prostatic hyperplasia
     Route: 048
     Dates: start: 2012
  6. APO-FINA [Concomitant]
     Indication: Benign prostatic hyperplasia
     Route: 048
     Dates: start: 2012
  7. CALPEROS [Concomitant]
     Route: 048
     Dates: start: 202107
  8. PREDNISONE [Concomitant]
     Active Substance: PREDNISONE
     Indication: Muscular weakness
     Route: 048
     Dates: start: 20230112, end: 20230201
  9. PREDNISONE [Concomitant]
     Active Substance: PREDNISONE
     Route: 048
     Dates: start: 20230202, end: 20230308
  10. PREDNISONE [Concomitant]
     Active Substance: PREDNISONE
     Route: 048
     Dates: start: 20230309, end: 20230322
  11. PREDNISONE [Concomitant]
     Active Substance: PREDNISONE
     Route: 048
     Dates: start: 20230323
  12. VITAMIN D3 [Concomitant]
     Active Substance: CHOLECALCIFEROL
     Dosage: 1000 U
     Route: 048
     Dates: start: 202106

REACTIONS (1)
  - Prostate cancer [Recovering/Resolving]

NARRATIVE: CASE EVENT DATE: 20230222
